FAERS Safety Report 8181036-4 (Version None)
Quarter: 2012Q1

REPORT INFORMATION
  Report Type: 
  Country: None (occurrence: None)
  Receive Date: 20120302
  Receipt Date: 20120301
  Transmission Date: 20120608
  Serious: Yes (Hospitalization)
  Sender: FDA-Public Use
  Company Number: US-PFIZER INC-2012055842

PATIENT
  Sex: Female
  Weight: 73 kg

DRUGS (10)
  1. CHANTIX [Suspect]
     Dosage: UNK
     Route: 048
  2. PLAVIX [Concomitant]
     Dosage: 75 MG, UNK
  3. CHANTIX [Suspect]
     Dosage: UNK
     Route: 048
     Dates: start: 20120109
  4. LAMOTRIGINE [Concomitant]
     Dosage: 100 MG, UNK
  5. FLUOXETINE [Concomitant]
     Dosage: 40 MG, UNK
  6. METOPROLOL [Concomitant]
     Dosage: 50 MG, UNK
  7. AMPHETAMINES [Concomitant]
     Dosage: 30 MG, UNK
  8. LORAZEPAM [Concomitant]
     Dosage: 1 MG, UNK
  9. CHANTIX [Suspect]
     Indication: SMOKING CESSATION THERAPY
     Dosage: 0.5 MG, 1X/DAY
     Route: 048
  10. ABILIFY [Concomitant]
     Dosage: 50 MG, UNK

REACTIONS (1)
  - PNEUMONIA [None]
